FAERS Safety Report 5046355-9 (Version None)
Quarter: 2006Q3

REPORT INFORMATION
  Report Type: 
  Country: None (occurrence: None)
  Receive Date: 20060710
  Receipt Date: 20041028
  Transmission Date: 20061208
  Serious: Yes (Death, Life-Threatening, Hospitalization, Other)
  Sender: FDA-Public Use
  Company Number: PHHO2004US15330

PATIENT
  Age: 65 Year
  Sex: Male

DRUGS (4)
  1. PEPCID [Concomitant]
  2. LOVENOX [Concomitant]
  3. TAXOTERE [Suspect]
     Indication: PROSTATE CANCER
     Dosage: 30 MG/M2
     Route: 042
     Dates: start: 20040816, end: 20041018
  4. IMATINIB VS PLACEBO [Suspect]
     Indication: PROSTATE CANCER
     Dosage: 600 MG, QD
     Route: 048
     Dates: start: 20040816, end: 20041022

REACTIONS (12)
  - CHEST TUBE INSERTION [None]
  - DYSPNOEA [None]
  - HYPOXIA [None]
  - LUNG INFILTRATION [None]
  - PNEUMONITIS [None]
  - PNEUMOTHORAX [None]
  - PRODUCTIVE COUGH [None]
  - PULMONARY HYPERTENSION [None]
  - RESPIRATORY DISTRESS [None]
  - RESPIRATORY FAILURE [None]
  - TRICUSPID VALVE INCOMPETENCE [None]
  - WHEEZING [None]
